FAERS Safety Report 19469428 (Version 4)
Quarter: 2021Q4

REPORT INFORMATION
  Report Type: Spontaneous
  Country: ES (occurrence: ES)
  Receive Date: 20210629
  Receipt Date: 20211011
  Transmission Date: 20220303
  Serious: Yes (Hospitalization, Other)
  Sender: FDA-Public Use
  Company Number: ES-MACLEODS PHARMA UK LTD-MAC2021031553

PATIENT
  Age: 70 Year
  Sex: Female
  Weight: 57 kg

DRUGS (1)
  1. OLMESARTAN [Suspect]
     Active Substance: OLMESARTAN
     Indication: Hypertension
     Dosage: UNK, SINCE ONE YEAR BEFORE
     Route: 065

REACTIONS (12)
  - Pallor [Recovered/Resolved]
  - Mucosal dryness [Recovered/Resolved]
  - Dyspepsia [Recovered/Resolved]
  - Coeliac disease [Recovered/Resolved]
  - Hypotension [Recovered/Resolved]
  - Chronic gastritis [Recovered/Resolved]
  - Decreased appetite [Recovered/Resolved]
  - Colitis microscopic [Recovering/Resolving]
  - Asthenia [Unknown]
  - Diarrhoea [Unknown]
  - Abdominal pain [Unknown]
  - Weight decreased [Unknown]
